FAERS Safety Report 7928839-6 (Version None)
Quarter: 2011Q4

REPORT INFORMATION
  Report Type: 
  Country: None (occurrence: None)
  Receive Date: 20111118
  Receipt Date: 20111104
  Transmission Date: 20120403
  Serious: Yes (Life-Threatening, Other)
  Sender: FDA-Public Use
  Company Number: FR-ROCHE-1013532

PATIENT
  Sex: Female

DRUGS (17)
  1. SYMBICORT [Suspect]
     Indication: ASTHMA
     Dates: start: 20100101
  2. PREDNISONE TAB [Suspect]
     Indication: ASTHMA
     Route: 048
     Dates: start: 20080101
  3. FENOFIBRATE [Suspect]
     Indication: PRODUCT USED FOR UNKNOWN INDICATION
     Route: 065
  4. ACETAMINOPHEN [Suspect]
     Indication: PRODUCT USED FOR UNKNOWN INDICATION
     Route: 065
  5. BRICANYL [Suspect]
     Indication: ASTHMA
     Dates: start: 20080101
  6. PROTELOS [Suspect]
     Indication: OSTEOPOROSIS
     Route: 065
     Dates: start: 20100101
  7. DESLORATADINE [Suspect]
     Indication: PRODUCT USED FOR UNKNOWN INDICATION
     Route: 065
  8. CACIT VITAMINE D3 [Suspect]
     Indication: PRODUCT USED FOR UNKNOWN INDICATION
     Route: 065
  9. PANTOPRAZOLE SODIUM [Suspect]
     Indication: PRODUCT USED FOR UNKNOWN INDICATION
     Route: 065
  10. UTEPLEX [Suspect]
     Indication: PRODUCT USED FOR UNKNOWN INDICATION
     Route: 065
  11. XOLAIR [Suspect]
     Indication: ASTHMA
     Route: 058
     Dates: start: 20080710, end: 20090801
  12. XOLAIR [Suspect]
     Route: 058
     Dates: start: 20090801, end: 20100401
  13. DEDROGYL [Suspect]
     Indication: PRODUCT USED FOR UNKNOWN INDICATION
     Route: 065
  14. ALDACTONE [Suspect]
     Indication: PRODUCT USED FOR UNKNOWN INDICATION
     Route: 065
  15. ATROVENT [Suspect]
     Indication: ASTHMA
     Dates: start: 20080101
  16. XOLAIR [Suspect]
     Route: 058
     Dates: start: 20100401, end: 20100805
  17. SINGULAIR [Suspect]
     Indication: ASTHMA
     Route: 065

REACTIONS (4)
  - PANCOAST'S SYNDROME [None]
  - DRUG INEFFECTIVE [None]
  - LUNG SQUAMOUS CELL CARCINOMA STAGE UNSPECIFIED [None]
  - PULMONARY TUBERCULOSIS [None]
